FAERS Safety Report 8028298-1 (Version None)
Quarter: 2012Q1

REPORT INFORMATION
  Report Type: 
  Country: None (occurrence: None)
  Receive Date: 20120106
  Receipt Date: 20120105
  Transmission Date: 20120608
  Serious: Yes (Other)
  Sender: FDA-Public Use
  Company Number: US-ROCHE-1027717

PATIENT
  Sex: Female

DRUGS (6)
  1. FOSAMAX [Suspect]
     Indication: OSTEOPOROSIS
     Dates: end: 20051101
  2. BONIVA [Suspect]
     Indication: OSTEOPOROSIS
     Dates: end: 20091201
  3. BONIVA [Suspect]
     Indication: OSTEOPENIA
  4. BONIVA [Suspect]
     Indication: OSTEITIS DEFORMANS
  5. FOSAMAX [Suspect]
     Indication: OSTEITIS DEFORMANS
  6. FOSAMAX [Suspect]
     Indication: OSTEOPENIA

REACTIONS (3)
  - FEMUR FRACTURE [None]
  - ANXIETY [None]
  - EMOTIONAL DISTRESS [None]
